FAERS Safety Report 22680476 (Version 5)
Quarter: 2024Q2

REPORT INFORMATION
  Report Type: Spontaneous
  Country: US (occurrence: US)
  Receive Date: 20230707
  Receipt Date: 20240521
  Transmission Date: 20240716
  Serious: Yes (Other)
  Sender: FDA-Public Use
  Company Number: US-BRISTOL-MYERS SQUIBB COMPANY-2023-095485

PATIENT
  Age: 36 Year
  Sex: Male

DRUGS (2)
  1. SPRYCEL [Suspect]
     Active Substance: DASATINIB
     Indication: Chronic myeloid leukaemia
     Route: 048
     Dates: start: 202305
  2. SPRYCEL [Suspect]
     Active Substance: DASATINIB
     Route: 048
     Dates: start: 202305

REACTIONS (8)
  - Sinusitis [Unknown]
  - Constipation [Unknown]
  - Flatulence [Unknown]
  - Nausea [Unknown]
  - Abdominal discomfort [Unknown]
  - Head discomfort [Unknown]
  - Hydrocephalus [Unknown]
  - Mite allergy [Unknown]
